FAERS Safety Report 9082102 (Version 1)
Quarter: 2013Q1

REPORT INFORMATION
  Report Type: Report from Study
  Country: US (occurrence: US)
  Receive Date: 20130130
  Receipt Date: 20130130
  Transmission Date: 20140127
  Serious: No
  Sender: FDA-Public Use
  Company Number: US-ABBOTT-12P-163-0972445-00

PATIENT
  Age: 62 Year
  Sex: Female

DRUGS (8)
  1. HUMIRA 40 MG/0.8 ML PEN [Suspect]
     Indication: CROHN^S DISEASE
     Dates: start: 201207
  2. WELLBUTRIN [Concomitant]
     Indication: DEPRESSION
  3. NEXIUM [Concomitant]
     Indication: GASTROOESOPHAGEAL REFLUX DISEASE
  4. ONDANSETRON HCL [Concomitant]
     Indication: NAUSEA
  5. CLONAZEPAM [Concomitant]
     Indication: NERVOUSNESS
  6. LORTAB [Concomitant]
     Indication: PAIN
  7. PHENAZOPYRIDINE [Concomitant]
     Indication: BLADDER SPASM
  8. FUROSEMIDE [Concomitant]
     Indication: SWELLING

REACTIONS (7)
  - Weight increased [Not Recovered/Not Resolved]
  - Skin papilloma [Unknown]
  - Scar [Unknown]
  - Muscle spasms [Unknown]
  - Wound [Unknown]
  - Tenderness [Unknown]
  - Pain [Unknown]
